FAERS Safety Report 4642806-X (Version None)
Quarter: 2005Q2

REPORT INFORMATION
  Report Type: 
  Country: None (occurrence: None)
  Receive Date: 20050420
  Receipt Date: 20050405
  Transmission Date: 20051028
  Serious: Yes (Hospitalization)
  Sender: FDA-Public Use
  Company Number: 213789

PATIENT
  Age: 51 Year
  Sex: Female

DRUGS (6)
  1. HERCEPTIN [Suspect]
     Indication: BREAST CANCER METASTATIC
     Dosage: SEE IMAGE
     Route: 042
     Dates: start: 20050318, end: 20050318
  2. HERCEPTIN [Suspect]
     Indication: BREAST CANCER METASTATIC
     Dosage: SEE IMAGE
     Route: 042
     Dates: start: 20050325
  3. VINFLUNINE (VINFLUNINE) [Suspect]
     Indication: BREAST CANCER METASTATIC
     Dosage: 678 MG, Q3W, INTRAVENOUS
     Route: 042
     Dates: start: 20050318
  4. FORLAX (POLYETHYLENE GLYCOL, POTASSIUM NOS, SODIUM  CARBONATE, SODIUM [Concomitant]
  5. LAXOBERON (SODIUM PICOSULFATE) [Concomitant]
  6. INNOHEP [Concomitant]

REACTIONS (2)
  - GENERAL PHYSICAL HEALTH DETERIORATION [None]
  - MYALGIA [None]
